FAERS Safety Report 8361686 (Version 4)
Quarter: 2013Q3

REPORT INFORMATION
  Report Type: Spontaneous
  Country: US (occurrence: US)
  Receive Date: 20120130
  Receipt Date: 20130902
  Transmission Date: 20140515
  Serious: Yes (Hospitalization, Other)
  Sender: FDA-Public Use
  Company Number: US-PFIZER INC-2012019668

PATIENT
  Age: 38 Year
  Sex: Female
  Weight: 52.15 kg

DRUGS (12)
  1. LYRICA [Suspect]
     Indication: FIBROMYALGIA
     Dosage: 150 MG, 2X/DAY
     Route: 048
     Dates: start: 200910
  2. HYDROCORTISONE [Interacting]
     Indication: ADDISON^S DISEASE
     Dosage: UNK
     Dates: start: 20111226
  3. FENTANYL [Concomitant]
     Dosage: 75 UG, UNK
  4. HYDROCODONE [Concomitant]
     Dosage: 10/325 MG, UNK
  5. XANAX [Concomitant]
     Dosage: 1 MG, 3X/DAY
  6. PROZAC [Concomitant]
     Dosage: 20 MG, 1X/DAY
  7. TEMAZEPAM [Concomitant]
     Dosage: 30 MG, 1X/DAY
  8. ESTRADIOL [Concomitant]
     Dosage: 1 MG, 1X/DAY
  9. TRAZODONE [Concomitant]
     Dosage: 50 MG, UNK
  10. DALMANE [Concomitant]
     Dosage: 30 MG, 1X/DAY
  11. CALCIUM [Concomitant]
     Dosage: 10 MG, 2X/DAY
  12. FLUDROCORTISONE [Concomitant]
     Dosage: 0.1 MG, 1X/DAY

REACTIONS (14)
  - Addison^s disease [Not Recovered/Not Resolved]
  - Loss of consciousness [Unknown]
  - Drug interaction [Unknown]
  - Muscle disorder [Unknown]
  - Angioedema [Unknown]
  - Neuropathy peripheral [Unknown]
  - Arthritis [Unknown]
  - Fall [Unknown]
  - Fibromyalgia [Unknown]
  - Body height decreased [Unknown]
  - Weight decreased [Unknown]
  - Malaise [Not Recovered/Not Resolved]
  - Asthenia [Not Recovered/Not Resolved]
  - Fatigue [Not Recovered/Not Resolved]
